FAERS Safety Report 19473146 (Version 1)
Quarter: 2021Q2

REPORT INFORMATION
  Report Type: Spontaneous
  Country: JP (occurrence: JP)
  Receive Date: 20210629
  Receipt Date: 20210629
  Transmission Date: 20210717
  Serious: Yes (Other)
  Sender: FDA-Public Use
  Company Number: JP-TAKEDA-2021TUS040260

PATIENT

DRUGS (1)
  1. INTUNIV [Suspect]
     Active Substance: GUANFACINE HYDROCHLORIDE
     Indication: ATTENTION DEFICIT HYPERACTIVITY DISORDER
     Route: 048

REACTIONS (22)
  - Discomfort [Unknown]
  - Abdominal pain [Unknown]
  - Somnolence [Unknown]
  - Orthostatic intolerance [Unknown]
  - Nausea [Unknown]
  - Dizziness [Unknown]
  - Middle insomnia [Unknown]
  - Disturbance in attention [Unknown]
  - Anger [Unknown]
  - Musculoskeletal stiffness [Unknown]
  - Thirst [Unknown]
  - Asthenia [Unknown]
  - Mental impairment [Unknown]
  - Malaise [Unknown]
  - Poor quality sleep [Unknown]
  - Blood pressure decreased [Unknown]
  - Feeling abnormal [Unknown]
  - Rash [Unknown]
  - Pollakiuria [Unknown]
  - Constipation [Unknown]
  - Depressive symptom [Unknown]
  - Initial insomnia [Unknown]
